FAERS Safety Report 10258594 (Version 4)
Quarter: 2014Q3

REPORT INFORMATION
  Report Type: Report from Study
  Country: US (occurrence: US)
  Receive Date: 20140625
  Receipt Date: 20140721
  Transmission Date: 20150326
  Serious: Yes (Death, Hospitalization)
  Sender: FDA-Public Use
  Company Number: US-BIOGENIDEC-2005BI003424

PATIENT
  Age: 46 Year
  Sex: Female

DRUGS (17)
  1. ARICEPT [Concomitant]
     Active Substance: DONEPEZIL HYDROCHLORIDE
     Dates: start: 20040301
  2. TIZANIDINE [Concomitant]
     Active Substance: TIZANIDINE
  3. VITAMIN C [Concomitant]
     Active Substance: ASCORBIC ACID
     Dates: start: 20040801
  4. ZANTAC [Concomitant]
     Active Substance: RANITIDINE HYDROCHLORIDE
     Dates: start: 20041215
  5. ZANAFLEX [Concomitant]
     Active Substance: TIZANIDINE HYDROCHLORIDE
     Dates: start: 20030508
  6. VITAMIN B [Concomitant]
     Active Substance: VITAMIN B
     Dates: start: 20040801
  7. AVONEX [Concomitant]
     Active Substance: INTERFERON BETA-1A
     Indication: MULTIPLE SCLEROSIS
     Route: 030
     Dates: start: 200002, end: 20050224
  8. AMBIEN [Concomitant]
     Active Substance: ZOLPIDEM TARTRATE
     Dates: start: 20041215
  9. DONEPEZIL [Concomitant]
     Active Substance: DONEPEZIL
  10. CITALOPRAM [Concomitant]
     Active Substance: CITALOPRAM HYDROBROMIDE
  11. ADVIL [Concomitant]
     Active Substance: IBUPROFEN
     Dates: start: 20040804
  12. VITAMIN E [Concomitant]
     Active Substance: .ALPHA.-TOCOPHEROL
     Dates: start: 20040801
  13. NATALIZUMAB [Suspect]
     Active Substance: NATALIZUMAB
     Indication: MULTIPLE SCLEROSIS
     Route: 042
     Dates: start: 20020222, end: 20050118
  14. ROFECOXIB [Concomitant]
     Active Substance: ROFECOXIB
  15. TRAMADOL [Concomitant]
     Active Substance: TRAMADOL
  16. ACETAMINOPHEN. [Concomitant]
     Active Substance: ACETAMINOPHEN
  17. GALANTAMINE [Concomitant]
     Active Substance: GALANTAMINE

REACTIONS (1)
  - Progressive multifocal leukoencephalopathy [Fatal]

NARRATIVE: CASE EVENT DATE: 20050212
